FAERS Safety Report 7959380-2 (Version None)
Quarter: 2011Q4

REPORT INFORMATION
  Report Type: 
  Country: None (occurrence: None)
  Receive Date: 20111206
  Receipt Date: 20111201
  Transmission Date: 20120403
  Serious: Yes (Other)
  Sender: FDA-Public Use
  Company Number: FR-PFIZER INC-2011293241

PATIENT
  Age: 66 Year
  Sex: Male

DRUGS (5)
  1. PREDNISOLONE [Suspect]
     Indication: ASTHMA
     Dosage: 20 MG, 1X/DAY
     Route: 048
     Dates: start: 20100101
  2. BUDESONIDE [Suspect]
     Indication: ASTHMA
     Dosage: 1 DF, 3X/DAY
     Route: 055
  3. ZOCOR [Suspect]
     Indication: HYPERCHOLESTEROLAEMIA
     Dosage: 20 MG, 1X/DAY
     Route: 048
  4. LEVOFLOXACIN [Suspect]
     Indication: COUGH
     Dosage: 500 MG, 2X/DAY
     Route: 048
     Dates: start: 20111024, end: 20111031
  5. ZITHROMAX [Suspect]
     Indication: COUGH
     Dosage: 250 MG, 1X/DAY
     Route: 048
     Dates: start: 20111024

REACTIONS (1)
  - TENDONITIS [None]
